FAERS Safety Report 4439069-7 (Version None)
Quarter: 2004Q3

REPORT INFORMATION
  Report Type: 
  Country: None (occurrence: None)
  Receive Date: 20040901
  Receipt Date: 20040730
  Transmission Date: 20050211
  Serious: Yes (Disabling)
  Sender: FDA-Public Use
  Company Number: JP-GLAXOSMITHKLINE-B0341425A

PATIENT
  Age: 28 Year
  Sex: Female

DRUGS (3)
  1. ZANTAC [Suspect]
     Indication: CAMPYLOBACTER GASTROENTERITIS
     Dosage: 100MG PER DAY
     Route: 042
     Dates: start: 20040624, end: 20040625
  2. SOLITA-T NO.3 [Concomitant]
     Indication: CAMPYLOBACTER GASTROENTERITIS
     Dosage: 500ML PER DAY
     Route: 042
     Dates: start: 20040624, end: 20040625
  3. SUBVITAN N [Concomitant]
     Indication: VITAMIN SUPPLEMENTATION
     Dosage: 5ML PER DAY
     Route: 042
     Dates: start: 20040624, end: 20040625

REACTIONS (3)
  - MUSCULAR WEAKNESS [None]
  - OEDEMA PERIPHERAL [None]
  - PAIN [None]
